FAERS Safety Report 7546876-0 (Version None)
Quarter: 2011Q2

REPORT INFORMATION
  Report Type: 
  Country: None (occurrence: None)
  Receive Date: 20110614
  Receipt Date: 20110601
  Transmission Date: 20111010
  Serious: Yes (Hospitalization)
  Sender: FDA-Public Use
  Company Number: JP-SANOFI-AVENTIS-2011SA035500

PATIENT
  Age: 24 Year
  Sex: Female
  Weight: 37 kg

DRUGS (1)
  1. FUROSEMIDE [Suspect]
     Dosage: SHE TOOK TWELVE TABLETS OF 40 MG.
     Route: 048

REACTIONS (5)
  - PLEURAL EFFUSION [None]
  - HYPOKALAEMIA [None]
  - RESPIRATORY DISORDER [None]
  - DYSURIA [None]
  - CONVULSION [None]
